FAERS Safety Report 5755915-9 (Version None)
Quarter: 2008Q2

REPORT INFORMATION
  Report Type: 
  Country: None (occurrence: None)
  Receive Date: 20080602
  Receipt Date: 20080520
  Transmission Date: 20081010
  Serious: Yes (Other)
  Sender: FDA-Public Use
  Company Number: US-ELI_LILLY_AND_COMPANY-US200805004286

PATIENT
  Sex: Female
  Weight: 70.3 kg

DRUGS (9)
  1. CYMBALTA [Suspect]
     Dates: start: 20080301
  2. LYRICA [Concomitant]
     Indication: FIBROMYALGIA
     Dosage: 75 MG, 2/D
     Dates: start: 20080301
  3. LYRICA [Concomitant]
     Dosage: 75 MG, DAILY (1/D)
     Dates: start: 20080101, end: 20080401
  4. WELCHOL [Concomitant]
     Dates: start: 20080301, end: 20080401
  5. SYNTHROID [Concomitant]
     Dates: start: 20080301
  6. TRAZODONE HCL [Concomitant]
  7. SOMA [Concomitant]
  8. BUPRENORPHINE HCL [Concomitant]
  9. PROMETHAZINE [Concomitant]

REACTIONS (17)
  - ALANINE AMINOTRANSFERASE INCREASED [None]
  - ARTHRALGIA [None]
  - BLOOD CHOLESTEROL INCREASED [None]
  - BLOOD CREATININE INCREASED [None]
  - BLOOD THYROID STIMULATING HORMONE INCREASED [None]
  - BLOOD TRIGLYCERIDES INCREASED [None]
  - GAIT DISTURBANCE [None]
  - HIGH DENSITY LIPOPROTEIN INCREASED [None]
  - JOINT SWELLING [None]
  - LOW DENSITY LIPOPROTEIN INCREASED [None]
  - LYMPHOCYTE MORPHOLOGY ABNORMAL [None]
  - NEUTROPHIL COUNT INCREASED [None]
  - OEDEMA PERIPHERAL [None]
  - RASH MACULAR [None]
  - RED BLOOD CELL COUNT DECREASED [None]
  - RED BLOOD CELL SEDIMENTATION RATE INCREASED [None]
  - SKIN MASS [None]
